FAERS Safety Report 18255385 (Version 2)
Quarter: 2020Q4

REPORT INFORMATION
  Report Type: Spontaneous
  Country: US (occurrence: US)
  Receive Date: 20200910
  Receipt Date: 20201002
  Transmission Date: 20210113
  Serious: Yes (Death, Hospitalization, Other)
  Sender: FDA-Public Use
  Company Number: US-JNJFOC-A-NJ2018-167370

PATIENT
  Age: 36 Year
  Sex: Female
  Weight: 92.62 kg

DRUGS (13)
  1. DILTIAZEM. [Concomitant]
     Active Substance: DILTIAZEM
  2. OXYGEN. [Concomitant]
     Active Substance: OXYGEN
     Dosage: UNK
  3. ADEMPAS [Suspect]
     Active Substance: RIOCIGUAT
     Dosage: 2 MG, UNK
     Route: 065
  4. OPSUMIT [Suspect]
     Active Substance: MACITENTAN
     Indication: PULMONARY ARTERIAL HYPERTENSION
     Dosage: 10 MG, QD
     Route: 048
  5. REMODULIN [Suspect]
     Active Substance: TREPROSTINIL
     Indication: PRODUCT USED FOR UNKNOWN INDICATION
     Route: 058
  6. LASIX [Concomitant]
     Active Substance: FUROSEMIDE
     Dosage: 40 MG, QD
  7. OXYGEN. [Concomitant]
     Active Substance: OXYGEN
     Dosage: 5 L
  8. ADEMPAS [Suspect]
     Active Substance: RIOCIGUAT
     Indication: PRODUCT USED FOR UNKNOWN INDICATION
     Dosage: 0.5 MG, TID
     Route: 065
  9. REMODULIN [Suspect]
     Active Substance: TREPROSTINIL
     Dosage: UNK
     Route: 042
  10. ADEMPAS [Suspect]
     Active Substance: RIOCIGUAT
     Route: 065
  11. FENTANYL. [Concomitant]
     Active Substance: FENTANYL
  12. TREPROSTINIL. [Concomitant]
     Active Substance: TREPROSTINIL
     Dosage: 40 NG/KG, PER MIN
     Dates: start: 201707
  13. ALDACTONE [Concomitant]
     Active Substance: SPIRONOLACTONE
     Dosage: 50 MG, BID

REACTIONS (29)
  - Asthenia [Unknown]
  - Weight increased [Recovering/Resolving]
  - Chest pain [Unknown]
  - Dyspnoea [Recovered/Resolved]
  - Palpitations [Recovering/Resolving]
  - Dyspnoea exertional [Unknown]
  - Death [Fatal]
  - Infusion site infection [Unknown]
  - Migraine [Unknown]
  - Abdominal pain [Unknown]
  - Immune system disorder [Unknown]
  - Hyperhidrosis [Unknown]
  - Pneumonia [Unknown]
  - Impaired gastric emptying [Unknown]
  - Dysstasia [Unknown]
  - Weight decreased [Unknown]
  - Systemic lupus erythematosus [Recovered/Resolved]
  - Complication associated with device [Recovered/Resolved]
  - Fatigue [Recovering/Resolving]
  - Malaise [Unknown]
  - Hospitalisation [Unknown]
  - Nausea [Recovering/Resolving]
  - Vomiting [Unknown]
  - Pericardial effusion [Recovering/Resolving]
  - Cardiac flutter [Unknown]
  - Fluid retention [Recovered/Resolved]
  - Syncope [Recovering/Resolving]
  - Product dose omission issue [Unknown]
  - Blood glucose abnormal [Unknown]

NARRATIVE: CASE EVENT DATE: 201812
